FAERS Safety Report 19045073 (Version 1)
Quarter: 2021Q1

REPORT INFORMATION
  Report Type: Spontaneous
  Country: US (occurrence: US)
  Receive Date: 20210323
  Receipt Date: 20210323
  Transmission Date: 20210420
  Serious: No
  Sender: FDA-Public Use
  Company Number: None

PATIENT
  Age: 46 Year
  Sex: Female

DRUGS (2)
  1. WOMEN^S ALIVE ENERGY MULTIVITAMIN [Concomitant]
  2. NASALCROM [Suspect]
     Active Substance: CROMOLYN SODIUM
     Indication: HYPERSENSITIVITY
     Dosage: ?          QUANTITY:1 SPRAY(S);OTHER FREQUENCY:UPTO 6/DAY/NOSTRIL;OTHER ROUTE:NASAL SPRAY?
     Dates: start: 20210228, end: 20210320

REACTIONS (3)
  - Epistaxis [None]
  - Application site irritation [None]
  - Headache [None]

NARRATIVE: CASE EVENT DATE: 20210320
